FAERS Safety Report 5266605-3 (Version None)
Quarter: 2007Q1

REPORT INFORMATION
  Report Type: 
  Country: None (occurrence: None)
  Receive Date: 20070315
  Receipt Date: 20070306
  Transmission Date: 20070707
  Serious: Yes (Hospitalization)
  Sender: FDA-Public Use
  Company Number: FR-PFIZER INC-2007017977

PATIENT
  Age: 62 Year
  Sex: Male

DRUGS (4)
  1. ALDACTONE [Suspect]
     Indication: CARDIAC FAILURE
     Route: 048
     Dates: start: 20050515, end: 20061013
  2. TRIATEC [Suspect]
     Route: 048
  3. CORGARD [Concomitant]
     Route: 048
  4. ISOPTIN [Concomitant]
     Route: 048

REACTIONS (2)
  - HYPERKALAEMIA [None]
  - MALAISE [None]
